FAERS Safety Report 5062384-3 (Version None)
Quarter: 2006Q3

REPORT INFORMATION
  Report Type: 
  Country: None (occurrence: None)
  Receive Date: 20060726
  Receipt Date: 20060720
  Transmission Date: 20061208
  Serious: Yes (Hospitalization)
  Sender: FDA-Public Use
  Company Number: 455247

PATIENT
  Age: 74 Year
  Sex: Male

DRUGS (8)
  1. CARVEDILOL [Suspect]
     Indication: CARDIAC FAILURE
     Route: 048
     Dates: start: 20031212
  2. CETAPRIL [Suspect]
     Indication: CARDIAC FAILURE
     Dosage: 25MG TWICE PER DAY
     Route: 048
     Dates: start: 20020214, end: 20040812
  3. LASIX [Concomitant]
  4. ALDACTONE [Concomitant]
  5. ALLOPURINOL [Concomitant]
  6. TAKEPRON [Concomitant]
  7. ASPIRIN [Concomitant]
  8. WARFARIN SODIUM [Concomitant]

REACTIONS (4)
  - DEHYDRATION [None]
  - HYPOTENSION [None]
  - RENAL FAILURE [None]
  - VENTRICULAR TACHYCARDIA [None]
